FAERS Safety Report 20109659 (Version 1)
Quarter: 2021Q4

REPORT INFORMATION
  Report Type: Report from Study
  Country: US (occurrence: US)
  Receive Date: 20211124
  Receipt Date: 20211124
  Transmission Date: 20220303
  Serious: Yes (Hospitalization, Other)
  Sender: FDA-Public Use
  Company Number: US-JNJFOC-20211141642

PATIENT
  Age: 78 Year
  Sex: Female

DRUGS (5)
  1. ESKETAMINE [Suspect]
     Active Substance: ESKETAMINE
     Indication: Product used for unknown indication
     Dosage: 56 MG, 1 TOTAL DOSE
     Dates: start: 20210914, end: 20210914
  2. ESKETAMINE [Suspect]
     Active Substance: ESKETAMINE
     Dosage: 28 MG, 2 TOTAL DOSES
     Dates: start: 20210916, end: 20210923
  3. ESKETAMINE [Suspect]
     Active Substance: ESKETAMINE
     Dosage: 56 MG, 1 TOTAL DOSE
     Dates: start: 20210928, end: 20210928
  4. ESKETAMINE [Suspect]
     Active Substance: ESKETAMINE
     Dosage: 84 MG, 1 TOTAL DOSE
     Dates: start: 20210930, end: 20210930
  5. ESKETAMINE [Suspect]
     Active Substance: ESKETAMINE
     Dosage: 56 MG, 5 TOTAL DOSES
     Dates: start: 20211004, end: 20211026

REACTIONS (1)
  - Cardiac failure [Unknown]
